FAERS Safety Report 8259247-9 (Version None)
Quarter: 2012Q2

REPORT INFORMATION
  Report Type: 
  Country: None (occurrence: None)
  Receive Date: 20120404
  Receipt Date: 20120326
  Transmission Date: 20120825
  Serious: Yes (Hospitalization, Other)
  Sender: FDA-Public Use
  Company Number: US-ASTRAZENECA-2011SE22029

PATIENT
  Age: 54 Year
  Sex: Female
  Weight: 69.4 kg

DRUGS (106)
  1. SEROQUEL [Suspect]
     Indication: SLEEP DISORDER
     Route: 048
     Dates: start: 19930101
  2. SEROQUEL [Suspect]
     Indication: AFFECTIVE DISORDER
     Route: 048
     Dates: start: 19930101
  3. SEROQUEL [Suspect]
     Route: 048
     Dates: start: 19940101
  4. SEROQUEL [Suspect]
     Route: 048
     Dates: start: 19940101
  5. SEROQUEL [Suspect]
     Route: 048
     Dates: start: 20020101
  6. SEROQUEL [Suspect]
     Route: 048
  7. SEROQUEL [Suspect]
     Route: 048
  8. SEROQUEL [Suspect]
     Route: 048
     Dates: start: 20120201
  9. SEROQUEL [Suspect]
     Route: 048
     Dates: start: 20120201
  10. NEXIUM [Suspect]
     Route: 048
  11. DEPAKOTE [Concomitant]
     Dosage: 1000 MG IN THE MORNING AND 1000 MG IN THE EVENING AND 1000 MG AT NIGHT
     Route: 048
  12. FOLIC ACID [Concomitant]
     Indication: CARDIAC DISORDER
     Route: 048
  13. ZONISANIDE [Concomitant]
  14. SEROQUEL [Suspect]
     Indication: ANXIETY
     Route: 048
     Dates: start: 19930101
  15. SEROQUEL [Suspect]
     Route: 048
  16. SEROQUEL [Suspect]
     Route: 048
     Dates: start: 20020101
  17. SEROQUEL [Suspect]
     Route: 048
  18. SEROQUEL [Suspect]
     Route: 048
  19. SEROQUEL [Suspect]
     Route: 048
  20. SEROQUEL [Suspect]
     Route: 048
     Dates: start: 20120201
  21. NEXIUM [Suspect]
     Indication: GASTROOESOPHAGEAL REFLUX DISEASE
     Route: 048
     Dates: start: 20110101
  22. ZANAFLEX [Concomitant]
     Indication: EPILEPSY
     Route: 048
  23. VITAMIN TAB [Concomitant]
  24. SEROQUEL [Suspect]
     Route: 048
     Dates: start: 19940101
  25. SEROQUEL [Suspect]
     Route: 048
     Dates: start: 19940101
  26. SEROQUEL [Suspect]
     Route: 048
  27. SEROQUEL [Suspect]
     Route: 048
     Dates: start: 20020101
  28. SEROQUEL [Suspect]
     Route: 048
     Dates: start: 20020101
  29. SEROQUEL [Suspect]
     Route: 048
  30. SEROQUEL [Suspect]
     Route: 048
  31. SEROQUEL [Suspect]
     Route: 048
  32. SEROQUEL [Suspect]
     Route: 048
  33. SEROQUEL [Suspect]
     Route: 048
  34. SEROQUEL [Suspect]
     Route: 048
  35. SEROQUEL [Suspect]
     Route: 048
     Dates: start: 20120201
  36. NEXIUM [Suspect]
     Route: 048
  37. ATENOLOL [Concomitant]
     Indication: CARDIAC DISORDER
     Route: 048
  38. DEPAKOTE [Concomitant]
     Dosage: 1000MG IN THE MORNING AND 1000MG IN THE EVENING
     Route: 048
  39. EFFEXOR [Concomitant]
  40. TANZANADINE [Concomitant]
     Dosage: THREE TIMES A DAY
     Route: 048
  41. DIVALPROEX SODIUM [Concomitant]
     Indication: EPILEPSY
  42. TENORMIN [Concomitant]
  43. FERROUS SULFATE TAB [Concomitant]
  44. SEROQUEL [Suspect]
     Indication: BIPOLAR DISORDER
     Route: 048
     Dates: start: 19930101
  45. SEROQUEL [Suspect]
     Indication: DEPRESSION
     Route: 048
     Dates: start: 19930101
  46. SEROQUEL [Suspect]
     Route: 048
  47. SEROQUEL [Suspect]
     Route: 048
     Dates: start: 20020101
  48. SEROQUEL [Suspect]
     Route: 048
     Dates: start: 20020101
  49. SEROQUEL [Suspect]
     Route: 048
  50. SEROQUEL [Suspect]
     Route: 048
  51. SEROQUEL [Suspect]
     Route: 048
  52. SEROQUEL [Suspect]
     Route: 048
     Dates: start: 20120201
  53. NEXIUM [Suspect]
     Indication: ULCER
     Route: 048
     Dates: start: 20110101
  54. PRILOSEC OTC [Suspect]
     Route: 048
  55. VIMPAC [Concomitant]
     Indication: EPILEPSY
     Route: 048
  56. VIMPAC [Concomitant]
     Route: 048
  57. POTASSIUM CHLORIDE [Concomitant]
  58. SEROQUEL [Suspect]
     Indication: PERSONALITY DISORDER
     Route: 048
     Dates: start: 19930101
  59. SEROQUEL [Suspect]
     Route: 048
     Dates: start: 19940101
  60. SEROQUEL [Suspect]
     Route: 048
  61. SEROQUEL [Suspect]
     Route: 048
  62. SEROQUEL [Suspect]
     Route: 048
  63. SEROQUEL [Suspect]
     Route: 048
  64. SEROQUEL [Suspect]
     Route: 048
  65. ZANTAC [Concomitant]
     Dosage: 150 MG, TWO TIMES A DAY
     Route: 048
  66. LASIX [Concomitant]
  67. SEROQUEL [Suspect]
     Route: 048
     Dates: start: 19940101
  68. SEROQUEL [Suspect]
     Route: 048
  69. SEROQUEL [Suspect]
     Route: 048
     Dates: start: 20020101
  70. SEROQUEL [Suspect]
     Route: 048
     Dates: start: 20020101
  71. SEROQUEL [Suspect]
     Route: 048
  72. SEROQUEL [Suspect]
     Route: 048
  73. SEROQUEL [Suspect]
     Route: 048
  74. SEROQUEL [Suspect]
     Route: 048
     Dates: start: 20120201
  75. SEROQUEL [Suspect]
     Route: 048
     Dates: start: 20120201
  76. DEPAKOTE [Concomitant]
     Indication: EPILEPSY
     Route: 048
  77. VALIUM [Concomitant]
     Indication: AGITATION
     Route: 048
  78. ZENOGRAN [Concomitant]
     Indication: HEADACHE
     Route: 048
  79. ZANAFLEX [Concomitant]
     Indication: HEADACHE
     Route: 048
  80. PRISTIQ [Concomitant]
     Indication: NERVOUS SYSTEM DISORDER
     Route: 048
  81. SEROQUEL [Suspect]
     Indication: SCHIZOPHRENIA
     Route: 048
     Dates: start: 19930101
  82. SEROQUEL [Suspect]
     Route: 048
     Dates: start: 19930101
  83. SEROQUEL [Suspect]
     Indication: POST-TRAUMATIC STRESS DISORDER
     Route: 048
     Dates: start: 19930101
  84. SEROQUEL [Suspect]
     Route: 048
     Dates: start: 19940101
  85. SEROQUEL [Suspect]
     Route: 048
  86. SEROQUEL [Suspect]
     Route: 048
  87. SEROQUEL [Suspect]
     Route: 048
  88. SEROQUEL [Suspect]
     Route: 048
  89. SEROQUEL [Suspect]
     Route: 048
  90. SEROQUEL [Suspect]
     Route: 048
  91. SEROQUEL [Suspect]
     Route: 048
  92. SEROQUEL [Suspect]
     Route: 048
     Dates: start: 20120201
  93. SEROQUEL [Suspect]
     Route: 048
     Dates: start: 20120201
  94. SIMVASTATIN [Concomitant]
  95. CLONAZEPAM [Concomitant]
  96. ZINC SULFATE [Concomitant]
     Indication: MINERAL SUPPLEMENTATION
     Route: 048
  97. LASIX [Concomitant]
  98. SEROQUEL [Suspect]
     Route: 048
     Dates: start: 19940101
  99. SEROQUEL [Suspect]
     Route: 048
     Dates: start: 19940101
  100. SEROQUEL [Suspect]
     Route: 048
  101. SEROQUEL [Suspect]
     Route: 048
     Dates: start: 20020101
  102. SEROQUEL [Suspect]
     Route: 048
  103. SEROQUEL [Suspect]
     Route: 048
  104. HYDROXYZINE [Concomitant]
  105. ZENOGRAN [Concomitant]
     Indication: EPILEPSY
     Route: 048
  106. POTASSIUM [Concomitant]

REACTIONS (26)
  - VOMITING [None]
  - INCORRECT DOSE ADMINISTERED [None]
  - DRUG DOSE OMISSION [None]
  - OFF LABEL USE [None]
  - CARDIAC DISORDER [None]
  - WEIGHT DECREASED [None]
  - IMPAIRED DRIVING ABILITY [None]
  - GASTROOESOPHAGEAL REFLUX DISEASE [None]
  - WRONG TECHNIQUE IN DRUG USAGE PROCESS [None]
  - CONVULSION [None]
  - CLAVICLE FRACTURE [None]
  - ABDOMINAL PAIN UPPER [None]
  - INSOMNIA [None]
  - MYOCARDIAL INFARCTION [None]
  - FALL [None]
  - DISSOCIATIVE IDENTITY DISORDER [None]
  - DEPRESSION [None]
  - HALLUCINATION, AUDITORY [None]
  - HALLUCINATION, VISUAL [None]
  - BIPOLAR DISORDER [None]
  - SCHIZOPHRENIA, PARANOID TYPE [None]
  - UPPER LIMB FRACTURE [None]
  - ULCER [None]
  - TENDON RUPTURE [None]
  - FEELING ABNORMAL [None]
  - LIGAMENT RUPTURE [None]
